FAERS Safety Report 4368776-X (Version None)
Quarter: 2004Q2

REPORT INFORMATION
  Report Type: 
  Country: None (occurrence: None)
  Receive Date: 20040525
  Receipt Date: 20040510
  Transmission Date: 20050107
  Serious: Yes (Disabling)
  Sender: FDA-Public Use
  Company Number: 2004AP02591

PATIENT
  Age: 66 Year
  Sex: Female
  Weight: 75 kg

DRUGS (9)
  1. NAROPIN [Suspect]
     Indication: ANALGESIC EFFECT
     Dosage: 37.5 MG ED
     Route: 008
     Dates: start: 20040414, end: 20040414
  2. NAROPIN [Suspect]
     Indication: EPIDURAL ANAESTHESIA
     Dosage: 37.5 MG ED
     Route: 008
     Dates: start: 20040414, end: 20040414
  3. NAROPIN [Suspect]
     Indication: ANALGESIC EFFECT
     Dosage: 5 ML ED
     Route: 008
     Dates: start: 20040414, end: 20040414
  4. NAROPIN [Suspect]
     Indication: EPIDURAL ANAESTHESIA
     Dosage: 5 ML ED
     Route: 008
     Dates: start: 20040414, end: 20040414
  5. LEPETAN [Concomitant]
  6. DIPRIVAN [Concomitant]
  7. XYLOCAINE W/ EPINEPHRINE [Concomitant]
  8. MUSCULAX [Concomitant]
  9. INOVAN [Concomitant]

REACTIONS (4)
  - APPLICATION SITE ANAESTHESIA [None]
  - APPLICATION SITE INFLAMMATION [None]
  - APPLICATION SITE PAIN [None]
  - HYPERSENSITIVITY [None]
